FAERS Safety Report 9340813 (Version 2)
Quarter: 2013Q4

REPORT INFORMATION
  Report Type: Spontaneous
  Country: US (occurrence: US)
  Receive Date: 20130610
  Receipt Date: 20131121
  Transmission Date: 20140711
  Serious: Yes (Hospitalization)
  Sender: FDA-Public Use
  Company Number: US-B.I. PHARMACEUTICALS,INC./RIDGEFIELD-2013-BI-15934BP

PATIENT
  Age: 70 Year
  Sex: Male
  Weight: 84.82 kg

DRUGS (7)
  1. PRADAXA [Suspect]
     Indication: ANTICOAGULANT THERAPY
     Dates: start: 20110315
  2. GLIPIZIDE [Concomitant]
     Dosage: 10 MG
  3. METFORMIN [Concomitant]
     Dosage: 2 G
  4. METOPROLOL [Concomitant]
     Dosage: 50 MG
  5. PRILOSEC [Concomitant]
     Dosage: 20 MG
  6. VITAMIN D3 [Concomitant]
     Dosage: 1000 U
  7. ZESTRIL [Concomitant]
     Dosage: 10 MG

REACTIONS (5)
  - Gastrointestinal haemorrhage [Unknown]
  - Upper gastrointestinal haemorrhage [Unknown]
  - Anaemia [Unknown]
  - Syncope [Unknown]
  - Coagulopathy [Unknown]
